FAERS Safety Report 10958711 (Version 1)
Quarter: 2015Q1

REPORT INFORMATION
  Report Type: Spontaneous
  Country: US (occurrence: None)
  Receive Date: 20150226
  Receipt Date: 20150226
  Transmission Date: 20150721
  Serious: Yes (Other)
  Sender: FDA-Public Use
  Company Number: TPA2009A03451

PATIENT
  Age: 68 Year
  Sex: Female

DRUGS (1)
  1. PREVACID [Suspect]
     Active Substance: LANSOPRAZOLE
     Route: 048

REACTIONS (5)
  - Oedema peripheral [None]
  - Dyspnoea [None]
  - Anaphylactic shock [None]
  - Feeling hot [None]
  - Swelling face [None]
